FAERS Safety Report 7419717-X (Version None)
Quarter: 2011Q2

REPORT INFORMATION
  Report Type: 
  Country: None (occurrence: None)
  Receive Date: 20110418
  Receipt Date: 20110407
  Transmission Date: 20111010
  Serious: Yes (Death)
  Sender: FDA-Public Use
  Company Number: ES-ELI_LILLY_AND_COMPANY-ES201104002095

PATIENT
  Sex: Female
  Weight: 65 kg

DRUGS (5)
  1. IDEOS [Concomitant]
     Indication: BONE DISORDER
     Dosage: 1 DF, QD
     Route: 048
  2. FORTEO [Suspect]
     Indication: OSTEOPOROSIS
     Dosage: 20 UG, QD
     Route: 058
     Dates: start: 20110211, end: 20110201
  3. PREDNISONE [Concomitant]
     Dosage: 30 MG, UNK
     Route: 048
  4. DEZACOR [Concomitant]
     Indication: PULMONARY FIBROSIS
     Dosage: 30 MG, UNK
     Route: 048
  5. OMEPRAZOLE [Concomitant]
     Indication: GASTRIC DISORDER
     Dosage: UNK
     Route: 048

REACTIONS (1)
  - DEATH [None]
